FAERS Safety Report 18880067 (Version 2)
Quarter: 2021Q1

REPORT INFORMATION
  Report Type: Spontaneous
  Country: JP (occurrence: JP)
  Receive Date: 20210211
  Receipt Date: 20210222
  Transmission Date: 20210420
  Serious: Yes (Other)
  Sender: FDA-Public Use
  Company Number: JP-TEVA-2021-JP-1877073

PATIENT
  Age: 73 Year
  Sex: Male
  Weight: 91.9 kg

DRUGS (14)
  1. APREPITANT. [Interacting]
     Active Substance: APREPITANT
     Dosage: 80 MILLIGRAM DAILY; ON DAY 2 AND DAY 3
     Route: 048
  2. GEMCITABINE. [Suspect]
     Active Substance: GEMCITABINE
     Indication: LUNG SQUAMOUS CELL CARCINOMA STAGE IV
     Dosage: ON DAY 1 OF EACH CYCLE
     Route: 042
  3. RANITIDINE. [Concomitant]
     Active Substance: RANITIDINE
     Indication: PRODUCT USED FOR UNKNOWN INDICATION
     Dosage: 150 MILLIGRAM DAILY;
     Route: 048
  4. MAGNESIUM OXIDE. [Concomitant]
     Active Substance: MAGNESIUM OXIDE
     Indication: PRODUCT USED FOR UNKNOWN INDICATION
     Dosage: 330 MILLIGRAM DAILY;
     Route: 048
  5. SENNOSIDE [Concomitant]
     Active Substance: SENNOSIDES
     Indication: PRODUCT USED FOR UNKNOWN INDICATION
     Dosage: 12 MILLIGRAM DAILY;
     Route: 048
  6. PALONOSETRON. [Concomitant]
     Active Substance: PALONOSETRON HYDROCHLORIDE
     Indication: PROPHYLAXIS OF NAUSEA AND VOMITING
     Dosage: .75 MILLIGRAM DAILY; ON DAY 1
     Route: 042
  7. CISPLATIN. [Suspect]
     Active Substance: CISPLATIN
     Indication: LUNG SQUAMOUS CELL CARCINOMA STAGE IV
     Dosage: ON DAY 1 OF EACH CYCLE
     Route: 042
  8. APREPITANT. [Interacting]
     Active Substance: APREPITANT
     Indication: PROPHYLAXIS OF NAUSEA AND VOMITING
     Dosage: ON DAY 1
     Route: 048
  9. DEXAMETHASONE. [Concomitant]
     Active Substance: DEXAMETHASONE
     Indication: PROPHYLAXIS OF NAUSEA AND VOMITING
     Dosage: 8 MILLIGRAM DAILY; ON DAYS 2 TO 4
     Route: 048
  10. ASPIRIN. [Concomitant]
     Active Substance: ASPIRIN
     Indication: PRODUCT USED FOR UNKNOWN INDICATION
     Dosage: 100 MILLIGRAM DAILY;
     Route: 048
  11. ATORVASTATIN [Concomitant]
     Active Substance: ATORVASTATIN
     Indication: PRODUCT USED FOR UNKNOWN INDICATION
     Dosage: 5 MILLIGRAM DAILY;
     Route: 048
  12. CANDESARTAN. [Concomitant]
     Active Substance: CANDESARTAN
     Indication: PRODUCT USED FOR UNKNOWN INDICATION
     Dosage: 8 MILLIGRAM DAILY;
     Route: 048
  13. AMLODIPINE [Suspect]
     Active Substance: AMLODIPINE BESYLATE
     Indication: HYPERTENSION
     Dosage: 5 MILLIGRAM DAILY;
     Route: 048
  14. DEXAMETHASONE. [Concomitant]
     Active Substance: DEXAMETHASONE
     Dosage: 9.9 MILLIGRAM DAILY; ON DAY 1
     Route: 042

REACTIONS (4)
  - Drug-induced liver injury [Unknown]
  - Atrioventricular block first degree [Recovered/Resolved]
  - Atrioventricular block second degree [Recovered/Resolved]
  - Drug interaction [Recovered/Resolved]
